FAERS Safety Report 21408570 (Version 3)
Quarter: 2022Q4

REPORT INFORMATION
  Report Type: Report from Study
  Country: KR (occurrence: KR)
  Receive Date: 20221004
  Receipt Date: 20221019
  Transmission Date: 20230113
  Serious: Yes (Death, Life-Threatening, Hospitalization)
  Sender: FDA-Public Use
  Company Number: KR-PFIZER INC-PV202200074124

PATIENT
  Age: 28 Year
  Sex: Female
  Weight: 51 kg

DRUGS (26)
  1. BESPONSA [Suspect]
     Active Substance: INOTUZUMAB OZOGAMICIN
     Indication: Acute lymphocytic leukaemia
     Dosage: 1.21 MG, 1X/DAY
     Route: 042
     Dates: start: 20220926, end: 20220926
  2. PREDNISOLONE [Concomitant]
     Active Substance: PREDNISOLONE
     Indication: Acute lymphocytic leukaemia
     Dosage: 30 MG
     Route: 048
     Dates: start: 20220914
  3. PREDNISOLONE [Concomitant]
     Active Substance: PREDNISOLONE
     Dosage: 50 MG
     Route: 048
     Dates: start: 20220919
  4. PREDNISOLONE [Concomitant]
     Active Substance: PREDNISOLONE
     Dosage: 50 MG
     Route: 048
     Dates: start: 20220926, end: 20220928
  5. ABSTRAL [Concomitant]
     Active Substance: FENTANYL CITRATE
     Indication: Bone pain
     Dosage: 900 UG
     Route: 048
     Dates: start: 20220927, end: 20220928
  6. CIRCADIN PR [Concomitant]
     Indication: Prophylaxis
     Dosage: 2 MG
     Route: 048
     Dates: start: 20220926, end: 20220928
  7. HYDROCORTISONE SODIUM SUCCINATE [Concomitant]
     Active Substance: HYDROCORTISONE SODIUM SUCCINATE
     Indication: Prophylaxis
     Dosage: 100 MG
     Route: 042
     Dates: start: 20220926
  8. FENTADUR [Concomitant]
     Indication: Bone pain
     Dosage: 2.75 MG
     Route: 062
     Dates: start: 20220927
  9. HYDRINE [HYDROXYCARBAMIDE] [Concomitant]
     Indication: Acute lymphocytic leukaemia
     Dosage: 1000 MG (5 DAYS)
     Route: 048
     Dates: start: 20220914
  10. HYDRINE [HYDROXYCARBAMIDE] [Concomitant]
     Dosage: 3000 MG (7 DAYS)
     Dates: start: 20220919
  11. K CAB [Concomitant]
     Indication: Prophylaxis
     Dosage: 50 MG
     Route: 048
     Dates: start: 20220919, end: 20220928
  12. K CAB [Concomitant]
     Indication: Gastrooesophageal reflux disease
  13. K CAB [Concomitant]
     Indication: Peptic ulcer
  14. LIDOCAINE HYDROCHLORIDE [Concomitant]
     Active Substance: LIDOCAINE HYDROCHLORIDE
     Indication: Prophylaxis
     Dosage: UNK
     Route: 058
     Dates: start: 20220914, end: 20220914
  15. ONSERAN [Concomitant]
     Indication: Prophylaxis
     Dosage: 8 MG
     Route: 048
     Dates: start: 20220927, end: 20220928
  16. OXYCODONE HYDROCHLORIDE [Concomitant]
     Active Substance: OXYCODONE HYDROCHLORIDE
     Indication: Bone pain
     Dosage: 5 MG
     Route: 042
     Dates: start: 20220927, end: 20220927
  17. PHENIRAMINE [CHLORPHENAMINE MALEATE] [Concomitant]
     Indication: Prophylaxis
     Dosage: 4 MG
     Route: 042
     Dates: start: 20220926, end: 20220926
  18. PHENIRAMINE [CHLORPHENAMINE MALEATE] [Concomitant]
     Dosage: 8 UNK
     Dates: start: 20220928, end: 20220928
  19. SULFAMETHOXAZOLE\TRIMETHOPRIM [Concomitant]
     Active Substance: SULFAMETHOXAZOLE\TRIMETHOPRIM
     Indication: Prophylaxis
     Dosage: 400 MG
     Route: 048
     Dates: start: 20220926, end: 20220928
  20. SODIUM BICARBONATE [Concomitant]
     Active Substance: SODIUM BICARBONATE
     Indication: Prophylaxis
     Dosage: 40 MEQ
     Route: 042
     Dates: start: 20220926, end: 20220926
  21. SODIUM BICARBONATE [Concomitant]
     Active Substance: SODIUM BICARBONATE
     Dosage: 560 UNK
     Dates: start: 20220928, end: 20220928
  22. ALLOPURINOL [Concomitant]
     Active Substance: ALLOPURINOL
     Indication: Prophylaxis
     Dosage: 300 MG
     Route: 048
     Dates: start: 20220919, end: 20220928
  23. ZOLPIDEM TARTRATE [Concomitant]
     Active Substance: ZOLPIDEM TARTRATE
     Indication: Prophylaxis
     Dosage: 10 MG
     Route: 048
     Dates: start: 20220927, end: 20220927
  24. TYLENOL 8 HOUR ER [Concomitant]
     Indication: Prophylaxis
     Dosage: 1950 MG
     Route: 048
     Dates: start: 20220926, end: 20220928
  25. URSODIOL [Concomitant]
     Active Substance: URSODIOL
     Indication: Prophylaxis
     Dosage: 300 MG
     Route: 048
     Dates: start: 20220926, end: 20220928
  26. ZANAPAM [Concomitant]
     Indication: Depression
     Dosage: 0.75 MG
     Route: 048
     Dates: start: 20220927, end: 20220928

REACTIONS (2)
  - Hepatic failure [Fatal]
  - Septic shock [Not Recovered/Not Resolved]

NARRATIVE: CASE EVENT DATE: 20220928
